FAERS Safety Report 12998605 (Version 1)
Quarter: 2016Q4

REPORT INFORMATION
  Report Type: Spontaneous
  Country: US (occurrence: US)
  Receive Date: 20161204
  Receipt Date: 20161204
  Transmission Date: 20170207
  Serious: Yes (Disabling)
  Sender: FDA-Public Use
  Company Number: None

PATIENT
  Age: 42 Year
  Sex: Female
  Weight: 65.25 kg

DRUGS (14)
  1. BACLOFEN. [Concomitant]
     Active Substance: BACLOFEN
  2. TIZANIDINE HCL [Suspect]
     Active Substance: TIZANIDINE HYDROCHLORIDE
     Indication: MUSCLE SPASMS
     Dosage: ?          QUANTITY:42 TABLET(S);?
     Route: 048
     Dates: start: 20160715, end: 20160804
  3. XANAX [Concomitant]
     Active Substance: ALPRAZOLAM
  4. PRILOSEC [Concomitant]
     Active Substance: OMEPRAZOLE MAGNESIUM
  5. TOPAMAX [Concomitant]
     Active Substance: TOPIRAMATE
  6. FENTANYL. [Concomitant]
     Active Substance: FENTANYL
  7. FIORICET [Concomitant]
     Active Substance: ACETAMINOPHEN\BUTALBITAL\CAFFEINE
  8. IBUPROFEN. [Concomitant]
     Active Substance: IBUPROFEN
  9. SUDAFED [Concomitant]
     Active Substance: PSEUDOEPHEDRINE HYDROCHLORIDE
  10. EFFECTOR [Concomitant]
  11. WOMEN^S MULTIVITAMIN [Concomitant]
  12. OMEGA 3 PROBIOTICS + DIGESTIVE ENZYMES [Concomitant]
  13. LAMICTAL [Concomitant]
     Active Substance: LAMOTRIGINE
  14. TYLENOL [Concomitant]
     Active Substance: ACETAMINOPHEN

REACTIONS (12)
  - Migraine [None]
  - Headache [None]
  - Anxiety [None]
  - Panic attack [None]
  - Cold sweat [None]
  - Hyperhidrosis [None]
  - Heart rate increased [None]
  - Abnormal dreams [None]
  - Hallucination, auditory [None]
  - Hallucination, visual [None]
  - Fear [None]
  - Sleep disorder [None]

NARRATIVE: CASE EVENT DATE: 20160805
